FAERS Safety Report 25828768 (Version 1)
Quarter: 2025Q3

REPORT INFORMATION
  Report Type: Spontaneous
  Country: US (occurrence: US)
  Receive Date: 20250922
  Receipt Date: 20250922
  Transmission Date: 20251021
  Serious: No
  Sender: ROCHE
  Company Number: US-ROCHE-10000389387

PATIENT
  Age: 59 Year
  Sex: Female
  Weight: 67.13 kg

DRUGS (1)
  1. ACTEMRA [Suspect]
     Active Substance: TOCILIZUMAB
     Indication: Rheumatoid arthritis
     Dosage: THE LAST DOSE WAS ON 13-SEP-2025.
     Route: 058
     Dates: start: 20250830

REACTIONS (3)
  - Stomatitis [Unknown]
  - Ulcer [Unknown]
  - Pain [Unknown]

NARRATIVE: CASE EVENT DATE: 20250831
